FAERS Safety Report 18252928 (Version 4)
Quarter: 2021Q1

REPORT INFORMATION
  Report Type: Spontaneous
  Country: US (occurrence: US)
  Receive Date: 20200910
  Receipt Date: 20210310
  Transmission Date: 20210419
  Serious: Yes (Other)
  Sender: FDA-Public Use
  Company Number: US-GILEAD-2020-0494312

PATIENT
  Age: 52 Year
  Sex: Female
  Weight: 77 kg

DRUGS (71)
  1. REYATAZ [Concomitant]
     Active Substance: ATAZANAVIR SULFATE
     Indication: HIV INFECTION
  2. DILTIAZEM ER [Concomitant]
     Active Substance: DILTIAZEM
  3. HCTZ [Concomitant]
     Active Substance: HYDROCHLOROTHIAZIDE
  4. LISINOPRIL. [Concomitant]
     Active Substance: LISINOPRIL
  5. LORAZEPAM. [Concomitant]
     Active Substance: LORAZEPAM
  6. MEGESTROL [Concomitant]
     Active Substance: MEGESTROL
  7. NIFEDICAL XL [Concomitant]
     Active Substance: NIFEDIPINE
  8. OXYCODONE [Concomitant]
     Active Substance: OXYCODONE
  9. POTASSIUM CHLORIDE. [Concomitant]
     Active Substance: POTASSIUM CHLORIDE
  10. PREMARIN [Concomitant]
     Active Substance: ESTROGENS, CONJUGATED
  11. REMERON [Concomitant]
     Active Substance: MIRTAZAPINE
  12. ZOLPIDEM TARTRATE. [Concomitant]
     Active Substance: ZOLPIDEM TARTRATE
  13. ISENTRESS [Concomitant]
     Active Substance: RALTEGRAVIR POTASSIUM
     Indication: HIV INFECTION
  14. ZIAGEN [Concomitant]
     Active Substance: ABACAVIR SULFATE
     Indication: HIV INFECTION
  15. ASPIRIN. [Concomitant]
     Active Substance: ASPIRIN
  16. CARVEDILOL. [Concomitant]
     Active Substance: CARVEDILOL
  17. CIPROFLOXACIN. [Concomitant]
     Active Substance: CIPROFLOXACIN
  18. CLOTRIMAZOLE / BETAMETH [Concomitant]
     Active Substance: BETAMETHASONE DIPROPIONATE\CLOTRIMAZOLE
  19. FEXOFENADINE [Concomitant]
     Active Substance: FEXOFENADINE HYDROCHLORIDE
  20. LODRANE D [Concomitant]
     Active Substance: BROMPHENIRAMINE MALEATE\PSEUDOEPHEDRINE HYDROCHLORIDE
  21. OMEPRAZOLE. [Concomitant]
     Active Substance: OMEPRAZOLE
  22. PROMETHAZINE [Concomitant]
     Active Substance: PROMETHAZINE HYDROCHLORIDE
  23. VERAPAMIL [Concomitant]
     Active Substance: VERAPAMIL HYDROCHLORIDE
  24. JULUCA [Concomitant]
     Active Substance: DOLUTEGRAVIR SODIUM\RILPIVIRINE HYDROCHLORIDE
     Indication: HIV INFECTION
  25. AMOXICILLIN. [Concomitant]
     Active Substance: AMOXICILLIN
  26. METOPROLOL. [Concomitant]
     Active Substance: METOPROLOL
  27. QUINDAL [Concomitant]
  28. SINGULAIR [Concomitant]
     Active Substance: MONTELUKAST SODIUM
  29. SM LORATADINE [Concomitant]
  30. SUMATRIPTAN. [Concomitant]
     Active Substance: SUMATRIPTAN
  31. TRAMADOL. [Concomitant]
     Active Substance: TRAMADOL
  32. AMBIEN [Concomitant]
     Active Substance: ZOLPIDEM TARTRATE
  33. ANTI?DIARRHEAL [Concomitant]
     Active Substance: LOPERAMIDE HYDROCHLORIDE
  34. COREG [Concomitant]
     Active Substance: CARVEDILOL
  35. DIOVAN [Concomitant]
     Active Substance: VALSARTAN
  36. IBUPROFEN. [Concomitant]
     Active Substance: IBUPROFEN
  37. INVEGA [Concomitant]
     Active Substance: PALIPERIDONE
  38. ORPHENADRINE [Concomitant]
     Active Substance: ORPHENADRINE
  39. PROAIR HFA [Concomitant]
     Active Substance: ALBUTEROL SULFATE
  40. VENLAFAXINE [Concomitant]
     Active Substance: VENLAFAXINE HYDROCHLORIDE
  41. ZITHROMAX [Concomitant]
     Active Substance: AZITHROMYCIN DIHYDRATE
  42. TRUVADA [Suspect]
     Active Substance: EMTRICITABINE\TENOFOVIR DISOPROXIL FUMARATE
     Indication: HIV INFECTION
     Dosage: UNK
     Route: 048
     Dates: start: 2007
  43. ABILIFY [Concomitant]
     Active Substance: ARIPIPRAZOLE
  44. DOCUSATE [Concomitant]
     Active Substance: DOCUSATE
  45. ED A HIST [Concomitant]
  46. FUROSEMIDE. [Concomitant]
     Active Substance: FUROSEMIDE
  47. PENICILLIN VK [Concomitant]
     Active Substance: PENICILLIN V POTASSIUM
  48. TRUVADA [Suspect]
     Active Substance: EMTRICITABINE\TENOFOVIR DISOPROXIL FUMARATE
     Dosage: UNK
     Route: 048
     Dates: start: 2010, end: 2015
  49. ACETAMINOPHEN. [Concomitant]
     Active Substance: ACETAMINOPHEN
  50. CLARINEX [Concomitant]
     Active Substance: DESLORATADINE
  51. FLONASE [Concomitant]
     Active Substance: FLUTICASONE PROPIONATE
  52. FLUCONAZOLE. [Concomitant]
     Active Substance: FLUCONAZOLE
  53. PHENYTOIN. [Concomitant]
     Active Substance: PHENYTOIN
  54. SULF [Concomitant]
  55. TRIAMTERENE HCTZ [Concomitant]
     Active Substance: HYDROCHLOROTHIAZIDE\TRIAMTERENE
  56. TRIAZOLAM. [Concomitant]
     Active Substance: TRIAZOLAM
  57. AMDRY?C [Concomitant]
  58. AMLODIPINE [Concomitant]
     Active Substance: AMLODIPINE BESYLATE
  59. ENDAL HD [Concomitant]
     Active Substance: CHLORPHENIRAMINE MALEATE\HYDROCODONE\PHENYLEPHRINE
  60. EPZICOM [Concomitant]
     Active Substance: ABACAVIR SULFATE\LAMIVUDINE
     Indication: HIV INFECTION
  61. FE C [Concomitant]
  62. HYDRO?PC [Concomitant]
  63. RAMIPRIL. [Concomitant]
     Active Substance: RAMIPRIL
  64. VIGAMOX [Concomitant]
     Active Substance: MOXIFLOXACIN HYDROCHLORIDE
  65. EPIVIR [Concomitant]
     Active Substance: LAMIVUDINE
     Indication: HIV INFECTION
  66. AZITHROMYCIN ANHYDROUS. [Concomitant]
     Active Substance: AZITHROMYCIN ANHYDROUS
  67. CEPHALEXIN. [Concomitant]
     Active Substance: CEPHALEXIN
  68. FLUOCINONIDE. [Concomitant]
     Active Substance: FLUOCINONIDE
  69. HYDROCODONE [Concomitant]
     Active Substance: HYDROCODONE
  70. KETOCONAZOLE. [Concomitant]
     Active Substance: KETOCONAZOLE
  71. METHOCARBAMOL. [Concomitant]
     Active Substance: METHOCARBAMOL

REACTIONS (10)
  - Renal failure [Unknown]
  - Gout [Not Recovered/Not Resolved]
  - End stage renal disease [Unknown]
  - Emotional distress [Not Recovered/Not Resolved]
  - Anhedonia [Not Recovered/Not Resolved]
  - Anxiety [Not Recovered/Not Resolved]
  - Condition aggravated [Unknown]
  - Renal impairment [Not Recovered/Not Resolved]
  - Depression [Not Recovered/Not Resolved]
  - Pain [Not Recovered/Not Resolved]

NARRATIVE: CASE EVENT DATE: 2010
